FAERS Safety Report 9803028 (Version 1)
Quarter: 2014Q1

REPORT INFORMATION
  Report Type: Spontaneous
  Country: US (occurrence: None)
  Receive Date: 20140106
  Receipt Date: 20140106
  Transmission Date: 20141002
  Serious: Yes (Other)
  Sender: FDA-Public Use
  Company Number: None

PATIENT
  Age: 66 Year
  Sex: Female
  Weight: 52.16 kg

DRUGS (1)
  1. TIMOLOL MALEATE [Suspect]
     Indication: GLAUCOMA
     Dosage: STRENGTH: 0.5% 8ML BOTTLE?QUANTITY: 1 DROP EACH EYE ?FREQUENCY: DAILY?HOW WAS IT TAKEN OR USED: EYE DROPER?
     Dates: start: 201311, end: 201311

REACTIONS (2)
  - Eye irritation [None]
  - Product substitution issue [None]
